FAERS Safety Report 16679505 (Version 1)
Quarter: 2019Q3

REPORT INFORMATION
  Report Type: Spontaneous
  Country: GB (occurrence: GB)
  Receive Date: 20190807
  Receipt Date: 20190807
  Transmission Date: 20191004
  Serious: Yes (Other)
  Sender: FDA-Public Use
  Company Number: GB-MYLANLABS-2019M1073361

PATIENT
  Age: 49 Year
  Sex: Female

DRUGS (2)
  1. CANDESARTAN. [Suspect]
     Active Substance: CANDESARTAN
     Indication: MIGRAINE PROPHYLAXIS
     Dosage: NIGHT
     Route: 048
     Dates: start: 20190121
  2. CANDESARTAN. [Suspect]
     Active Substance: CANDESARTAN
     Dosage: NIGHT
     Route: 048
     Dates: end: 20190220

REACTIONS (5)
  - Dizziness [Recovered/Resolved]
  - Pharyngeal swelling [Recovered/Resolved]
  - Swelling face [Recovered/Resolved]
  - Burning sensation [Recovered/Resolved]
  - Palpitations [Recovered/Resolved]

NARRATIVE: CASE EVENT DATE: 20190121
